FAERS Safety Report 7712285-4 (Version None)
Quarter: 2011Q3

REPORT INFORMATION
  Report Type: 
  Country: None (occurrence: None)
  Receive Date: 20110822
  Receipt Date: 20110816
  Transmission Date: 20111222
  Serious: Yes (Hospitalization)
  Sender: FDA-Public Use
  Company Number: 2011SP034747

PATIENT
  Age: 52 Year
  Sex: Male

DRUGS (5)
  1. VIRAFERONPEG [Suspect]
     Indication: HEPATITIS C
     Dosage: 120 MCG;QW;SC ; 50 MCG;QW;SC
     Route: 058
     Dates: start: 20110721
  2. VIRAFERONPEG [Suspect]
     Indication: HEPATITIS C
     Dosage: 120 MCG;QW;SC ; 50 MCG;QW;SC
     Route: 058
     Dates: start: 20110516
  3. VICTRELIS [Suspect]
     Indication: HEPATITIS C
     Dosage: 800 MG;TID;PO
     Route: 048
     Dates: start: 20110610, end: 20110721
  4. REBETOL [Suspect]
     Indication: HEPATITIS C
     Dosage: 1000 MG;QD;PO ; 800 MG;QD;PO
     Route: 048
     Dates: start: 20110721
  5. REBETOL [Suspect]
     Indication: HEPATITIS C
     Dosage: 1000 MG;QD;PO ; 800 MG;QD;PO
     Route: 048
     Dates: start: 20110516

REACTIONS (8)
  - LYMPHANGITIS [None]
  - THROMBOCYTOPENIA [None]
  - STAPHYLOCOCCAL SEPSIS [None]
  - ANAEMIA [None]
  - GENERAL PHYSICAL HEALTH DETERIORATION [None]
  - DRUG INTOLERANCE [None]
  - ASTHENIA [None]
  - VOMITING [None]
